FAERS Safety Report 8996112 (Version 1)
Quarter: 2013Q1

REPORT INFORMATION
  Report Type: Spontaneous
  Country: US (occurrence: US)
  Receive Date: 20130103
  Receipt Date: 20130103
  Transmission Date: 20140127
  Serious: No
  Sender: FDA-Public Use
  Company Number: US-ABBOTT-12P-163-0938457-00

PATIENT
  Sex: Female
  Weight: 113.5 kg

DRUGS (2)
  1. SYNTHROID [Suspect]
     Indication: AUTOIMMUNE THYROIDITIS
     Route: 048
     Dates: start: 20120523
  2. UNSPECIFIED INGREDIENT [Concomitant]
     Indication: PRODUCT USED FOR UNKNOWN INDICATION

REACTIONS (3)
  - Feeling drunk [Recovering/Resolving]
  - Dysarthria [Recovering/Resolving]
  - Motor dysfunction [Recovering/Resolving]
